FAERS Safety Report 5569622-9 (Version None)
Quarter: 2007Q4

REPORT INFORMATION
  Report Type: 
  Country: None (occurrence: None)
  Receive Date: 20071218
  Receipt Date: 20071207
  Transmission Date: 20080405
  Serious: Yes (Hospitalization)
  Sender: FDA-Public Use
  Company Number: LTI2007A00344

PATIENT
  Age: 70 Year
  Sex: Male

DRUGS (6)
  1. ACTOS [Suspect]
     Indication: TYPE 2 DIABETES MELLITUS
     Dosage: 30 MG (30 MG, 1N 1 D) ORAL
     Route: 048
     Dates: start: 20070415, end: 20071025
  2. ACTOS [Suspect]
     Indication: TYPE 2 DIABETES MELLITUS
     Dosage: 30 MG (30 MG, 1N 1 D) ORAL
     Route: 048
     Dates: start: 20071026, end: 20071121
  3. DIAMICRON                    (CLICLAZIDE) [Concomitant]
  4. LERCANIDIPINE [Concomitant]
  5. DILTIAZEM HYDROCHLORIDE [Concomitant]
  6. ENDOTELON                          (VITIS VINIFERA, HERBAL EXTRACT NOS [Concomitant]

REACTIONS (4)
  - ACUTE PULMONARY OEDEMA [None]
  - CARDIAC FAILURE [None]
  - CARDIAC HYPERTROPHY [None]
  - MITRAL VALVE INCOMPETENCE [None]
